FAERS Safety Report 21002468 (Version 6)
Quarter: 2022Q4

REPORT INFORMATION
  Report Type: Spontaneous
  Country: CA (occurrence: CA)
  Receive Date: 20220624
  Receipt Date: 20221103
  Transmission Date: 20230112
  Serious: Yes (Other)
  Sender: FDA-Public Use
  Company Number: CA-CELLTRION INC.-2021CA018059

PATIENT

DRUGS (9)
  1. INFLECTRA [Suspect]
     Active Substance: INFLIXIMAB-DYYB
     Indication: Colitis ulcerative
     Dosage: 5 MG/KG, Q 0, 2, 6 DOSE WEEK THEN Q 8 WEEKS - DISCONTINUATION TO BE CONFIRMED BY MD
     Route: 042
     Dates: start: 20210924, end: 20220808
  2. INFLECTRA [Suspect]
     Active Substance: INFLIXIMAB-DYYB
     Dosage: 5 MG/KG, Q 0, 2, 6 DOSE WEEK THEN Q 8 WEEKS
     Route: 042
     Dates: start: 20211008
  3. INFLECTRA [Suspect]
     Active Substance: INFLIXIMAB-DYYB
     Dosage: 5 MG/KG, Q 0, 2, 6 DOSE WEEK THEN Q 8 WEEKS
     Route: 042
     Dates: start: 20211103
  4. INFLECTRA [Suspect]
     Active Substance: INFLIXIMAB-DYYB
     Dosage: 5 MG/KG, 0, 2, 6 DOSE WEEK THEN Q 8 WEEKS
     Route: 042
     Dates: start: 20211228
  5. INFLECTRA [Suspect]
     Active Substance: INFLIXIMAB-DYYB
     Dosage: 5 MG/KG, 0, 2, 6 DOSE WEEK THEN Q 8 WEEKS
     Route: 042
     Dates: start: 20220223
  6. INFLECTRA [Suspect]
     Active Substance: INFLIXIMAB-DYYB
     Dosage: 5 MG/KG, 0, 2, 6 DOSE WEEK THEN Q 8 WEEKS
     Route: 042
     Dates: start: 20220614
  7. INFLECTRA [Suspect]
     Active Substance: INFLIXIMAB-DYYB
     Dosage: 5 MG/KG, 0, 2, 6 DOSE WEEK THEN Q 8 WEEKS
     Route: 042
     Dates: start: 20220808, end: 202209
  8. MESALAMINE [Concomitant]
     Active Substance: MESALAMINE
     Dosage: 1 DF, DOSAGE NOT AVAILABLE
     Route: 065
  9. PREDNISONE [Concomitant]
     Active Substance: PREDNISONE
     Dosage: 10 MG, 1X/DAY
     Route: 065

REACTIONS (8)
  - Haematochezia [Not Recovered/Not Resolved]
  - Condition aggravated [Unknown]
  - Weight increased [Unknown]
  - COVID-19 [Recovered/Resolved]
  - Headache [Recovered/Resolved]
  - Fatigue [Recovered/Resolved]
  - Malabsorption [Unknown]
  - Inappropriate schedule of product administration [Unknown]

NARRATIVE: CASE EVENT DATE: 20211103
